FAERS Safety Report 5425507-X (Version None)
Quarter: 2007Q3

REPORT INFORMATION
  Report Type: 
  Country: None (occurrence: None)
  Receive Date: 20070824
  Receipt Date: 20070815
  Transmission Date: 20080115
  Serious: Yes (Hospitalization, Other)
  Sender: FDA-Public Use
  Company Number: US-PFIZER INC-2007044437

PATIENT
  Sex: Male
  Weight: 64.4 kg

DRUGS (1)
  1. CELEBREX [Suspect]

REACTIONS (5)
  - BACK PAIN [None]
  - CARDIOVASCULAR DISORDER [None]
  - CHEST PAIN [None]
  - MUSCULOSKELETAL PAIN [None]
  - PAIN IN EXTREMITY [None]
